FAERS Safety Report 6697168-3 (Version None)
Quarter: 2010Q2

REPORT INFORMATION
  Report Type: 
  Country: None (occurrence: None)
  Receive Date: 20100426
  Receipt Date: 20100421
  Transmission Date: 20101027
  Serious: Yes (Hospitalization, Other)
  Sender: FDA-Public Use
  Company Number: JP-PFIZER INC-2009175987

PATIENT
  Age: 84 Year
  Sex: Female
  Weight: 40 kg

DRUGS (6)
  1. VFEND [Suspect]
     Indication: FEBRILE NEUTROPENIA
     Dosage: FREQUENCY: 2X/DAY,
     Route: 048
     Dates: start: 20081220, end: 20081223
  2. GASTER [Concomitant]
     Dosage: UNK
     Route: 048
     Dates: start: 20081112
  3. NEUQUINON [Concomitant]
     Dosage: UNK
     Route: 048
     Dates: start: 20081112
  4. COTRIM [Concomitant]
     Dosage: UNK
     Route: 048
     Dates: start: 20081112
  5. CARBENIN [Concomitant]
     Dosage: 0.5 G, 2X/DAY
     Route: 042
     Dates: start: 20081216, end: 20081230
  6. ITRIZOLE [Concomitant]
     Indication: ORAL CANDIDIASIS
     Dosage: 50 MG, 3X/DAY
     Route: 048
     Dates: start: 20081130, end: 20081219

REACTIONS (2)
  - DISORIENTATION [None]
  - HALLUCINATION, VISUAL [None]
